FAERS Safety Report 12695082 (Version 4)
Quarter: 2017Q2

REPORT INFORMATION
  Report Type: Report from Study
  Country: US (occurrence: US)
  Receive Date: 20160829
  Receipt Date: 20170420
  Transmission Date: 20170830
  Serious: Yes (Hospitalization)
  Sender: FDA-Public Use
  Company Number: US-JNJFOC-20160821168

PATIENT
  Age: 21 Year
  Sex: Female
  Weight: 71.22 kg

DRUGS (1)
  1. REMICADE [Suspect]
     Active Substance: INFLIXIMAB
     Indication: INFLAMMATORY BOWEL DISEASE
     Route: 042
     Dates: start: 20110825

REACTIONS (2)
  - Myofascial pain syndrome [Recovered/Resolved with Sequelae]
  - Endometriosis [Recovered/Resolved with Sequelae]

NARRATIVE: CASE EVENT DATE: 20160620
